FAERS Safety Report 10153417 (Version 1)
Quarter: 2014Q2

REPORT INFORMATION
  Report Type: Spontaneous
  Country: US (occurrence: US)
  Receive Date: 20140505
  Receipt Date: 20140505
  Transmission Date: 20141212
  Serious: No
  Sender: FDA-Public Use
  Company Number: US-ASTRAZENECA-2013SE52581

PATIENT
  Sex: Female

DRUGS (5)
  1. PRILOSEC [Suspect]
     Dosage: DAILY
     Route: 048
  2. VALIUM [Concomitant]
  3. FIBROCON [Concomitant]
  4. PROBIOTIC [Concomitant]
  5. NEUROLEX [Concomitant]

REACTIONS (6)
  - Functional gastrointestinal disorder [Unknown]
  - Back disorder [Unknown]
  - Muscle spasms [Unknown]
  - Fungal infection [Unknown]
  - Polyarthritis [Unknown]
  - Adverse event [Unknown]
